FAERS Safety Report 4848577-6 (Version None)
Quarter: 2005Q4

REPORT INFORMATION
  Report Type: 
  Country: None (occurrence: None)
  Receive Date: 20051206
  Receipt Date: 20050808
  Transmission Date: 20060501
  Serious: Yes (Death, Life-Threatening, Hospitalization)
  Sender: FDA-Public Use
  Company Number: 003#3#2005-00177

PATIENT
  Age: 75 Year
  Sex: Female

DRUGS (8)
  1. GLYCERYL TRINITRATE (GLYCERYL TRINITRATE) [Suspect]
  2. NITROGLYCERIN [Concomitant]
  3. LANSOPRAZOLE [Concomitant]
  4. ASPIRIN [Concomitant]
  5. LISINOPRIL [Concomitant]
  6. ATENOLOL [Concomitant]
  7. FUROSEMIDE [Concomitant]
  8. ATORVASTATIN CALCIUM [Concomitant]

REACTIONS (12)
  - ACUTE MYOCARDIAL INFARCTION [None]
  - COLON CANCER [None]
  - CORONARY ANGIOPLASTY [None]
  - LARYNGEAL OEDEMA [None]
  - LARYNGOSPASM [None]
  - LOWER GASTROINTESTINAL HAEMORRHAGE [None]
  - LOWER RESPIRATORY TRACT INFECTION [None]
  - OBSTRUCTIVE AIRWAYS DISORDER [None]
  - OVERDOSE [None]
  - PULMONARY OEDEMA [None]
  - STRIDOR [None]
  - THERAPY NON-RESPONDER [None]
